FAERS Safety Report 9559774 (Version 2)
Quarter: 2014Q1

REPORT INFORMATION
  Report Type: Spontaneous
  Country: US (occurrence: None)
  Receive Date: 20130906
  Receipt Date: 20131205
  Transmission Date: 20141002
  Serious: Yes (Other)
  Sender: FDA-Public Use
  Company Number: 163-POMAL-13080706

PATIENT
  Age: 58 Year
  Sex: Male
  Weight: 73.94 kg

DRUGS (7)
  1. POMALYST (POMALIDOMIDE) (4 MILLIGRAM, CAPSULES) [Suspect]
     Indication: PLASMA CELL MYELOMA
     Dosage: 1 CAPSULE FOR 10 DAYS, 10 DAYS OFF
     Route: 048
     Dates: start: 20130717
  2. ASPIRIN (ACETYLSALICYLIC ACID) [Concomitant]
  3. DEXAMETHASONE (DEXAMETHASONE) [Concomitant]
  4. PHENERGAN (PROMETHAZINE) [Concomitant]
  5. VICODIN (VICODIN) [Concomitant]
  6. VITAMIN C [Concomitant]
  7. FISH OIL (FISH OIL) [Concomitant]

REACTIONS (1)
  - Platelet count decreased [None]
